FAERS Safety Report 12340480 (Version 2)
Quarter: 2016Q2

REPORT INFORMATION
  Report Type: Report from Study
  Country: BR (occurrence: BR)
  Receive Date: 20160506
  Receipt Date: 20160614
  Transmission Date: 20160815
  Serious: Yes (Other)
  Sender: FDA-Public Use
  Company Number: BR-BRISTOL-MYERS SQUIBB COMPANY-BMS-2016-034542

PATIENT
  Sex: Female

DRUGS (3)
  1. TENSALIV [Concomitant]
     Active Substance: AMLODIPINE BESYLATE
     Indication: PRODUCT USED FOR UNKNOWN INDICATION
     Route: 065
  2. CIPROFIBRATE [Concomitant]
     Active Substance: CIPROFIBRATE
     Indication: PRODUCT USED FOR UNKNOWN INDICATION
     Route: 065
  3. ABATACEPT [Suspect]
     Active Substance: ABATACEPT
     Indication: RHEUMATOID ARTHRITIS
     Dosage: 3 DF, QMO
     Route: 042

REACTIONS (10)
  - Neoplasm [Unknown]
  - Pain [Unknown]
  - Skin wrinkling [Unknown]
  - Furuncle [Unknown]
  - Pruritus [Unknown]
  - Rash macular [Unknown]
  - Skin disorder [Unknown]
  - Joint lock [Unknown]
  - Infection [Unknown]
  - Anaemia [Recovered/Resolved]
